FAERS Safety Report 4340263-4 (Version None)
Quarter: 2004Q2

REPORT INFORMATION
  Report Type: 
  Country: None (occurrence: None)
  Receive Date: 20040412
  Receipt Date: 20040326
  Transmission Date: 20050107
  Serious: Yes (Death, Life-Threatening)
  Sender: FDA-Public Use
  Company Number: D01200400212

PATIENT
  Age: 60 Year
  Sex: Female
  Weight: 72 kg

DRUGS (11)
  1. CISPLATIN [Suspect]
     Indication: SMALL CELL LUNG CANCER EXTENSIVE STAGE
     Dosage: 80 MG/M2 CONT - INTRAVENOUS NOS
     Route: 042
     Dates: start: 20040120, end: 20040120
  2. ETOPOSIDE [Suspect]
     Indication: SMALL CELL LUNG CANCER EXTENSIVE STAGE
     Dosage: 120 MG/M2 GIVEN ON DAYS 1, 2 AND 3, IN A 30-MINUTE INFUSION- INTRAVENOUS NOS
     Route: 042
     Dates: start: 20040120, end: 20040120
  3. GLIBENCLAMIDE+METFORMIN HCL+GLUCOMIDE [Concomitant]
  4. ATENOLOL [Concomitant]
  5. RAMIPRIL [Concomitant]
  6. HYDROCHLOROTHIAZIDE [Concomitant]
  7. TRAMADOL HCL [Concomitant]
  8. DEXTROMETHORPAN HCL+ETAMIPHYLLIN CAMSILATE [Concomitant]
  9. OMEPRAZOLE [Concomitant]
  10. ALPRAZOLAM [Concomitant]
  11. ISOSORBIDE DINITRATE [Concomitant]

REACTIONS (3)
  - CARDIO-RESPIRATORY ARREST [None]
  - PLEURAL EFFUSION [None]
  - PULMONARY OEDEMA [None]
